FAERS Safety Report 10811372 (Version 1)
Quarter: 2015Q1

REPORT INFORMATION
  Report Type: Spontaneous
  Country: US (occurrence: None)
  Receive Date: 20150213
  Receipt Date: 20150213
  Transmission Date: 20150721
  Serious: No
  Sender: FDA-Public Use
  Company Number: None

PATIENT
  Age: 60 Year
  Sex: Female
  Weight: 66.68 kg

DRUGS (2)
  1. TRAMADOL 50MG [Suspect]
     Active Substance: TRAMADOL
     Indication: ARTHRITIS
     Dosage: 2 PILLS THREE TIMES DAILY TAKEN BY MOUTH
     Route: 048
  2. TRAMADOL 50MG [Suspect]
     Active Substance: TRAMADOL
     Indication: FIBROMYALGIA
     Dosage: 2 PILLS THREE TIMES DAILY TAKEN BY MOUTH
     Route: 048

REACTIONS (4)
  - Product substitution issue [None]
  - Product shape issue [None]
  - Product quality issue [None]
  - Product measured potency issue [None]
